FAERS Safety Report 8915371 (Version 2)
Quarter: 2013Q2

REPORT INFORMATION
  Report Type: Spontaneous
  Country: CN (occurrence: CN)
  Receive Date: 20121119
  Receipt Date: 20130611
  Transmission Date: 20140414
  Serious: Yes (Other)
  Sender: FDA-Public Use
  Company Number: CN-ASTRAZENECA-2012SE85246

PATIENT
  Age: 9337 Day
  Sex: Female

DRUGS (1)
  1. NEXIUM [Suspect]
     Indication: GASTRIC ULCER
     Route: 048
     Dates: start: 20120723, end: 20120725

REACTIONS (8)
  - Pain in extremity [Recovered/Resolved]
  - Granulocyte count decreased [Not Recovered/Not Resolved]
  - Erythropenia [Recovering/Resolving]
  - Red blood cell abnormality [Unknown]
  - Leukopenia [Not Recovered/Not Resolved]
  - Hyperhidrosis [Recovered/Resolved]
  - Dizziness [Recovered/Resolved]
  - Neutropenia [Unknown]
